FAERS Safety Report 9470919 (Version 1)
Quarter: 2013Q3

REPORT INFORMATION
  Report Type: Spontaneous
  Country: US (occurrence: US)
  Receive Date: 20130822
  Receipt Date: 20130822
  Transmission Date: 20140515
  Serious: No
  Sender: FDA-Public Use
  Company Number: US-SANOFI-AVENTIS-2013SA053685

PATIENT
  Sex: Female

DRUGS (1)
  1. AUVI-Q [Suspect]

REACTIONS (7)
  - Eye pruritus [Unknown]
  - Asthma [Unknown]
  - Cough [Unknown]
  - Vision blurred [Unknown]
  - Aphonia [Unknown]
  - Headache [Unknown]
  - Product odour abnormal [Unknown]
